FAERS Safety Report 7401703-7 (Version None)
Quarter: 2011Q2

REPORT INFORMATION
  Report Type: 
  Country: None (occurrence: None)
  Receive Date: 20110408
  Receipt Date: 20110330
  Transmission Date: 20111010
  Serious: Yes (Hospitalization)
  Sender: FDA-Public Use
  Company Number: US-AMGEN-USASP2011017205

PATIENT
  Age: 44 Year
  Sex: Male

DRUGS (5)
  1. GOLIMUMAB [Concomitant]
  2. ENBREL [Suspect]
     Indication: PSORIASIS
     Dosage: 50 MG, QWK
     Dates: start: 20090902, end: 20100301
  3. ENBREL [Suspect]
     Indication: RHEUMATOID ARTHRITIS
  4. TREXALL [Concomitant]
  5. HUMIRA [Concomitant]

REACTIONS (6)
  - ARTHRITIS [None]
  - IMPAIRED HEALING [None]
  - DRUG INEFFECTIVE [None]
  - INJECTION SITE URTICARIA [None]
  - PAIN IN EXTREMITY [None]
  - MALAISE [None]
